FAERS Safety Report 10176330 (Version 2)
Quarter: 2014Q2

REPORT INFORMATION
  Report Type: Spontaneous
  Country: US (occurrence: US)
  Receive Date: 20140516
  Receipt Date: 20140516
  Transmission Date: 20141212
  Serious: Yes (Other)
  Sender: FDA-Public Use
  Company Number: US-AMGEN-USASP2014024238

PATIENT
  Age: 85 Year
  Sex: Female

DRUGS (1)
  1. PROLIA [Suspect]
     Indication: OSTEOPOROSIS POSTMENOPAUSAL
     Dosage: UNK
     Route: 065
     Dates: start: 201303

REACTIONS (11)
  - Hypersensitivity vasculitis [Unknown]
  - Swelling [Unknown]
  - Scab [Unknown]
  - Pain [Unknown]
  - Hypertension [Unknown]
  - Papule [Unknown]
  - Insomnia [Unknown]
  - Pruritus [Unknown]
  - Erythema [Not Recovered/Not Resolved]
  - Rash [Unknown]
  - Urticaria [Unknown]
